FAERS Safety Report 20745503 (Version 1)
Quarter: 2022Q2

REPORT INFORMATION
  Report Type: Spontaneous
  Country: US (occurrence: None)
  Receive Date: 20220423
  Receipt Date: 20220423
  Transmission Date: 20220720
  Serious: Yes (Other)
  Sender: FDA-Public Use
  Company Number: None

PATIENT
  Age: 29 Year
  Sex: Male
  Weight: 84.15 kg

DRUGS (2)
  1. VYVANSE [Suspect]
     Active Substance: LISDEXAMFETAMINE DIMESYLATE
     Indication: Attention deficit hyperactivity disorder
     Dosage: FREQUENCY : DAILY;?
     Route: 048
     Dates: start: 20220218
  2. GUANFACINE [Concomitant]
     Active Substance: GUANFACINE

REACTIONS (3)
  - Drug ineffective [None]
  - Adulterated product [None]
  - Product substitution issue [None]

NARRATIVE: CASE EVENT DATE: 20220422
